FAERS Safety Report 13839756 (Version 1)
Quarter: 2017Q3

REPORT INFORMATION
  Report Type: Spontaneous
  Country: US (occurrence: US)
  Receive Date: 20170805
  Receipt Date: 20170805
  Transmission Date: 20171127
  Serious: No
  Sender: FDA-Public Use
  Company Number: None

PATIENT
  Sex: Female

DRUGS (1)
  1. FLONASE [Suspect]
     Active Substance: FLUTICASONE PROPIONATE
     Indication: RHINITIS ALLERGIC
     Dosage: DOSE - 2 SPRAYS EACH NOSTRIL?DATES OF USE - YEARS AGO FOR ONE MONTH
     Route: 045

REACTIONS (2)
  - Nasal congestion [None]
  - Drug ineffective [None]
